FAERS Safety Report 4403589-1 (Version None)
Quarter: 2004Q3

REPORT INFORMATION
  Report Type: 
  Country: None (occurrence: None)
  Receive Date: 20040721
  Receipt Date: 20040712
  Transmission Date: 20050211
  Serious: Yes (Death)
  Sender: FDA-Public Use
  Company Number: FR-GLAXOSMITHKLINE-B0338777A

PATIENT
  Age: 58 Year
  Sex: Male
  Weight: 67 kg

DRUGS (15)
  1. AUGMENTIN [Suspect]
     Route: 042
     Dates: start: 20040324, end: 20040430
  2. RIMIFON [Suspect]
     Dosage: 150MG PER DAY
     Route: 042
     Dates: start: 20040324, end: 20040513
  3. RIFADIN [Suspect]
     Dosage: 600MG PER DAY
     Route: 042
     Dates: start: 20040324, end: 20040513
  4. TRIFLUCAN [Concomitant]
     Dosage: 1UNIT PER DAY
     Route: 042
     Dates: start: 20040330, end: 20040430
  5. CIPROFLOXACIN [Concomitant]
     Route: 042
     Dates: start: 20040424, end: 20040505
  6. TAZOCILLINE [Concomitant]
     Route: 042
     Dates: start: 20040324, end: 20040425
  7. MYAMBUTOL [Concomitant]
     Route: 065
     Dates: start: 20040324, end: 20040505
  8. TIENAM [Concomitant]
     Route: 065
     Dates: start: 20040401, end: 20040505
  9. FLAGYL [Concomitant]
     Route: 065
     Dates: start: 20040312, end: 20040426
  10. VANCOMYCIN [Concomitant]
     Route: 065
     Dates: start: 20040422, end: 20040505
  11. CLINDAMYCIN HCL [Concomitant]
     Route: 065
     Dates: start: 20040325, end: 20040331
  12. ZEFFIX [Concomitant]
     Route: 065
  13. SEROPRAM [Concomitant]
     Route: 065
  14. OMEPRAZOLE [Concomitant]
     Route: 048
  15. LASIX [Concomitant]
     Route: 065

REACTIONS (2)
  - HEPATIC FAILURE [None]
  - HEPATITIS FULMINANT [None]
